FAERS Safety Report 11036850 (Version 1)
Quarter: 2015Q2

REPORT INFORMATION
  Report Type: Spontaneous
  Country: US (occurrence: None)
  Receive Date: 20150415
  Receipt Date: 20150415
  Transmission Date: 20150821
  Serious: Yes (Disabling)
  Sender: FDA-Public Use
  Company Number: None

PATIENT
  Age: 36 Year
  Sex: Female
  Weight: 49.9 kg

DRUGS (4)
  1. XULANE [Suspect]
     Active Substance: ETHINYL ESTRADIOL\NORELGESTROMIN
     Indication: OVULATION PAIN
     Dosage: 1 PATCH, APPLIED TO A SURFACE, USUALLY THE SKIN
     Route: 061
     Dates: start: 20150322, end: 20150414
  2. XULANE [Suspect]
     Active Substance: ETHINYL ESTRADIOL\NORELGESTROMIN
     Indication: CONTRACEPTION
     Dosage: 1 PATCH, APPLIED TO A SURFACE, USUALLY THE SKIN
     Route: 061
     Dates: start: 20150322, end: 20150414
  3. MAGNESIUM [Concomitant]
     Active Substance: MAGNESIUM
  4. IBUPROFEN. [Concomitant]
     Active Substance: IBUPROFEN

REACTIONS (8)
  - Application site pain [None]
  - Product substitution issue [None]
  - Body temperature increased [None]
  - Oligomenorrhoea [None]
  - Application site swelling [None]
  - Tinnitus [None]
  - Migraine [None]
  - Pain [None]

NARRATIVE: CASE EVENT DATE: 20150405
